FAERS Safety Report 18688604 (Version 5)
Quarter: 2021Q1

REPORT INFORMATION
  Report Type: Spontaneous
  Country: US (occurrence: US)
  Receive Date: 20201231
  Receipt Date: 20210222
  Transmission Date: 20210419
  Serious: No
  Sender: FDA-Public Use
  Company Number: US-SA-2020SA376008

PATIENT
  Age: 66 Year
  Sex: Female

DRUGS (1)
  1. LANTUS [Suspect]
     Active Substance: INSULIN GLARGINE
     Indication: TYPE 2 DIABETES MELLITUS
     Dosage: 28 IU, QD
     Route: 065

REACTIONS (2)
  - Diarrhoea [Unknown]
  - Illness [Unknown]

NARRATIVE: CASE EVENT DATE: 20201227
